FAERS Safety Report 8795770 (Version 1)
Quarter: 2012Q4

REPORT INFORMATION
  Report Type: 
  Country: CZ (occurrence: CZ)
  Receive Date: 20120919
  Receipt Date: 20120919
  Transmission Date: 20130627
  Serious: Yes (Other)
  Sender: FDA-Public Use
  Company Number: CZ-PFIZER INC-2012222629

PATIENT
  Age: 42 Year
  Sex: Female

DRUGS (9)
  1. PACLITAXEL [Suspect]
     Indication: BREAST CANCER
     Dosage: 90 mg/m2, total dose 150 mg, applied for 1 h, 12 weekly cycles
  2. CYCLOPHOSPHAMIDE [Concomitant]
     Indication: BREAST CANCER
     Dosage: 600 mg/m2, cyclic (4 cycles) administered every 21 days
  3. ADRIAMYCIN [Concomitant]
     Indication: BREAST CANCER
     Dosage: 60mg/m2 (4 cycles) administered every 21 days
  4. GOSERELIN [Concomitant]
     Indication: BREAST CANCER
     Dosage: UNK
  5. TAMOXIFEN [Concomitant]
     Indication: BREAST CANCER
     Dosage: UNK
  6. DEXAMETHASONE [Concomitant]
     Indication: PREMEDICATION
     Dosage: 8 mg, UNK
  7. RANITIDINE [Concomitant]
     Indication: PREMEDICATION
     Dosage: 50 mg, UNK
  8. ONDANSETRON [Concomitant]
     Indication: PREMEDICATION
     Dosage: 8 mg, UNK
  9. BISULEPIN [Concomitant]
     Indication: PREMEDICATION
     Dosage: 2 mg, (12h, 60min and 30min prior to paclitaxel administration respectively)

REACTIONS (1)
  - Hallucination [Recovered/Resolved]
